FAERS Safety Report 13262994 (Version 1)
Quarter: 2017Q1

REPORT INFORMATION
  Report Type: Spontaneous
  Country: US (occurrence: US)
  Receive Date: 20170223
  Receipt Date: 20170223
  Transmission Date: 20170428
  Serious: No
  Sender: FDA-Public Use
  Company Number: US-JNJFOC-20151103360

PATIENT
  Sex: Male

DRUGS (13)
  1. RISPERDAL [Suspect]
     Active Substance: RISPERIDONE
     Indication: SCHIZOPHRENIA
     Dosage: 0.25MG;0.5MG, 1MG;2MG;3MG;4MG
     Route: 048
     Dates: start: 2000, end: 2009
  2. RISPERDAL [Suspect]
     Active Substance: RISPERIDONE
     Indication: DEPRESSION
     Dosage: 0.25MG;0.5MG, 1MG;2MG;3MG;4MG
     Route: 048
     Dates: start: 2000, end: 2009
  3. INVEGA SUSTENNA [Suspect]
     Active Substance: PALIPERIDONE PALMITATE
     Indication: ATTENTION DEFICIT/HYPERACTIVITY DISORDER
     Dosage: 117MG/0.75ML AND 156MG/ML
     Route: 030
     Dates: start: 2014, end: 2015
  4. RISPERDAL [Suspect]
     Active Substance: RISPERIDONE
     Indication: TIC
     Dosage: 0.25MG;0.5MG, 1MG;2MG;3MG;4MG
     Route: 048
     Dates: start: 2000, end: 2009
  5. RISPERDAL [Suspect]
     Active Substance: RISPERIDONE
     Indication: ATTENTION DEFICIT/HYPERACTIVITY DISORDER
     Dosage: 0.25MG;0.5MG, 1MG;2MG;3MG;4MG
     Route: 048
     Dates: start: 2000, end: 2009
  6. INVEGA SUSTENNA [Suspect]
     Active Substance: PALIPERIDONE PALMITATE
     Indication: SCHIZOPHRENIA
     Dosage: 117MG/0.75ML AND 156MG/ML
     Route: 030
     Dates: start: 2014, end: 2015
  7. INVEGA SUSTENNA [Suspect]
     Active Substance: PALIPERIDONE PALMITATE
     Indication: BIPOLAR DISORDER
     Dosage: 117MG/0.75ML AND 156MG/ML
     Route: 030
     Dates: start: 2014, end: 2015
  8. RISPERDAL [Suspect]
     Active Substance: RISPERIDONE
     Indication: BIPOLAR DISORDER
     Dosage: 0.25MG;0.5MG, 1MG;2MG;3MG;4MG
     Route: 048
     Dates: start: 2000, end: 2009
  9. INVEGA SUSTENNA [Suspect]
     Active Substance: PALIPERIDONE PALMITATE
     Indication: BIPOLAR DISORDER
     Route: 030
  10. INVEGA SUSTENNA [Suspect]
     Active Substance: PALIPERIDONE PALMITATE
     Indication: DEPRESSION
     Route: 030
  11. INVEGA SUSTENNA [Suspect]
     Active Substance: PALIPERIDONE PALMITATE
     Indication: SCHIZOPHRENIA
     Route: 030
  12. INVEGA SUSTENNA [Suspect]
     Active Substance: PALIPERIDONE PALMITATE
     Indication: DEPRESSION
     Dosage: 117MG/0.75ML AND 156MG/ML
     Route: 030
     Dates: start: 2014, end: 2015
  13. INVEGA SUSTENNA [Suspect]
     Active Substance: PALIPERIDONE PALMITATE
     Indication: ATTENTION DEFICIT/HYPERACTIVITY DISORDER
     Route: 030

REACTIONS (5)
  - Galactorrhoea [Unknown]
  - Abnormal weight gain [Unknown]
  - Hyperprolactinaemia [Unknown]
  - Somnolence [Unknown]
  - Gynaecomastia [Unknown]

NARRATIVE: CASE EVENT DATE: 2001
